FAERS Safety Report 22052236 (Version 1)
Quarter: 2023Q1

REPORT INFORMATION
  Report Type: Other
  Country: CA (occurrence: None)
  Receive Date: 20230302
  Receipt Date: 20230302
  Transmission Date: 20230418
  Serious: Yes (Other)
  Sender: FDA-Public Use
  Company Number: CA-ROCHE-3294118

PATIENT
  Sex: Male

DRUGS (1)
  1. VABYSMO [Suspect]
     Active Substance: FARICIMAB-SVOA
     Indication: Diabetic retinal oedema
     Dosage: 6MG/0.05ML
     Route: 050
     Dates: start: 20230112

REACTIONS (2)
  - Blindness unilateral [Not Recovered/Not Resolved]
  - Eye infection [Unknown]
